FAERS Safety Report 9821840 (Version 1)
Quarter: 2014Q1

REPORT INFORMATION
  Report Type: Spontaneous
  Country: US (occurrence: US)
  Receive Date: 20140116
  Receipt Date: 20140116
  Transmission Date: 20141002
  Serious: Yes (Hospitalization)
  Sender: FDA-Public Use
  Company Number: US-ASTRAZENECA-2014SE01831

PATIENT
  Age: 44 Year
  Sex: Male

DRUGS (19)
  1. QUETIAPINE [Suspect]
     Indication: AFFECTIVE DISORDER
     Dosage: 1-3 TABLET  100 MG EVERY EVENING
     Route: 048
  2. BOCEPREVIR [Interacting]
     Indication: HEPATITIS C
  3. DOXAZOSIN [Interacting]
  4. TAMSULOSIN [Interacting]
  5. EFAVIRENZ [Concomitant]
  6. EMTRICITABINE [Concomitant]
  7. TENOFOVIR DISOPROXIL [Concomitant]
     Route: 048
  8. PEGINTERFERON ALFA-2B [Concomitant]
     Dosage: 120 UG EVERY 7 DAYS
     Route: 058
  9. RIBAVIRIN [Concomitant]
     Dosage: 400 MG EVERY MORNING/600 MG EVERY EVENING
  10. TESTOSTERON CYPIONATE [Concomitant]
     Indication: HYPOGONADISM MALE
     Dosage: 200 MG EVERY 14 DAYS
     Route: 030
  11. ONDANSETRON [Concomitant]
     Indication: NAUSEA
     Dosage: 4 MG EVERY 6 HOURS
  12. ESOMEPRAZOLE [Concomitant]
  13. LITHIUM [Concomitant]
  14. LOSARTAN [Concomitant]
  15. NAPROXEN [Concomitant]
  16. ACETAMINOPHEN/OXYCODONE [Concomitant]
     Indication: ANALGESIC THERAPY
     Dosage: 5-325 MG EVERY 6 HOURS AS NEEDED
  17. LOPERAMIDE [Concomitant]
     Indication: DIARRHOEA
  18. CODEINE/GUAIFENESIN [Concomitant]
     Indication: COUGH
     Dosage: 15 MG/5 ML-10 ML 4 TIMES DAILY
  19. CYCLOBENZAPRINE [Concomitant]
     Indication: MUSCLE SPASMS
     Dosage: 10 MG EVERY 8 HOURS AS NEEDED

REACTIONS (3)
  - Drug interaction [Recovered/Resolved]
  - Priapism [Recovered/Resolved]
  - Vomiting [Recovered/Resolved]
